FAERS Safety Report 9414815 (Version 2)
Quarter: 2014Q1

REPORT INFORMATION
  Report Type: Spontaneous
  Country: CA (occurrence: CA)
  Receive Date: 20130723
  Receipt Date: 20140124
  Transmission Date: 20141002
  Serious: Yes (Death)
  Sender: FDA-Public Use
  Company Number: CA-PFIZER INC-2013208853

PATIENT
  Sex: 0

DRUGS (1)
  1. SYNERCID [Suspect]
     Dosage: UNK

REACTIONS (1)
  - Death [Fatal]
